FAERS Safety Report 20085931 (Version 1)
Quarter: 2021Q4

REPORT INFORMATION
  Report Type: Spontaneous
  Country: US (occurrence: None)
  Receive Date: 20211117
  Receipt Date: 20211117
  Transmission Date: 20220304
  Serious: Yes (Death)
  Sender: FDA-Public Use
  Company Number: None

PATIENT
  Sex: Female

DRUGS (1)
  1. VELETRI (EPOPROSTENOL SODIUM) [Suspect]
     Active Substance: EPOPROSTENOL SODIUM
     Indication: Pulmonary arterial hypertension
     Dosage: OTHER QUANTITY : 36 NG/KG/MIN;?OTHER FREQUENCY : CONTINUOUS;?
     Route: 042
     Dates: start: 20210505

REACTIONS (1)
  - Death [None]
